FAERS Safety Report 6939300-X (Version None)
Quarter: 2010Q3

REPORT INFORMATION
  Report Type: 
  Country: None (occurrence: None)
  Receive Date: 20100824
  Receipt Date: 20100813
  Transmission Date: 20110219
  Serious: Yes (Other)
  Sender: FDA-Public Use
  Company Number: US-WYE-H16931110

PATIENT
  Sex: Female

DRUGS (5)
  1. PRISTIQ [Suspect]
     Indication: DEPRESSION
     Dates: start: 20100803
  2. PRISTIQ [Interacting]
     Indication: ANXIETY
  3. ATIVAN [Interacting]
     Indication: INSOMNIA
     Dates: start: 20100512, end: 20100101
  4. ATIVAN [Interacting]
     Indication: ANXIETY
     Dosage: INCREASED FREQUENCY TO 0.5 MG MORE THAN ONCE DAILY
     Dates: start: 20100101, end: 20100811
  5. SYNTHROID [Concomitant]
     Dosage: UNKNOWN

REACTIONS (13)
  - ANXIETY [None]
  - CONDITION AGGRAVATED [None]
  - DRUG EFFECT DECREASED [None]
  - DRUG INTERACTION [None]
  - FEELING ABNORMAL [None]
  - FEELING JITTERY [None]
  - HEADACHE [None]
  - HYPERACUSIS [None]
  - MENTAL DISORDER [None]
  - NERVOUSNESS [None]
  - RESTLESSNESS [None]
  - THINKING ABNORMAL [None]
  - UNEVALUABLE EVENT [None]
